FAERS Safety Report 8604133-5 (Version None)
Quarter: 2012Q3

REPORT INFORMATION
  Report Type: 
  Country: None (occurrence: None)
  Receive Date: 20120820
  Receipt Date: 20120716
  Transmission Date: 20120928
  Serious: Yes (Hospitalization)
  Sender: FDA-Public Use
  Company Number: GB-PURDUE-GBR-2012-0010341

PATIENT
  Age: 65 Year
  Sex: Female

DRUGS (9)
  1. CITALOPRAM [Concomitant]
  2. DICLOFENAC SODIUM [Suspect]
     Indication: PRODUCT USED FOR UNKNOWN INDICATION
     Dosage: 50 MG, TID
     Route: 048
     Dates: end: 20120308
  3. METOLAZONE [Suspect]
     Indication: PRODUCT USED FOR UNKNOWN INDICATION
     Dosage: UNK
     Route: 048
     Dates: end: 20120308
  4. MORPHINE SULFATE [Suspect]
     Indication: PAIN
     Dosage: 5 MG, BID
     Route: 048
     Dates: start: 20120304, end: 20120308
  5. PREGABALIN [Concomitant]
  6. LOSARTAN POTASSIUM [Suspect]
     Indication: PRODUCT USED FOR UNKNOWN INDICATION
     Dosage: UNK
     Route: 048
     Dates: end: 20120308
  7. ACETAMINOPHEN [Concomitant]
  8. OMEPRAZOLE [Concomitant]
  9. ALBUTEROL SULATE [Suspect]

REACTIONS (5)
  - TOXICITY TO VARIOUS AGENTS [None]
  - DEHYDRATION [None]
  - RENAL FAILURE ACUTE [None]
  - SOMNOLENCE [None]
  - CONFUSIONAL STATE [None]
